FAERS Safety Report 5205861-4 (Version None)
Quarter: 2007Q1

REPORT INFORMATION
  Report Type: 
  Country: None (occurrence: None)
  Receive Date: 20070111
  Receipt Date: 20070103
  Transmission Date: 20070707
  Serious: Yes (Death)
  Sender: FDA-Public Use
  Company Number: PHBS2007US00616

PATIENT
  Age: 62 Year
  Sex: Male

DRUGS (3)
  1. CYCLOSPORINE [Suspect]
     Indication: LIVER TRANSPLANT
     Route: 065
  2. RAPAMYCIN [Suspect]
     Indication: LIVER TRANSPLANT
     Route: 065
  3. CORTICOSTEROIDS [Suspect]
     Indication: LIVER TRANSPLANT
     Route: 065

REACTIONS (10)
  - BACTERIAL SEPSIS [None]
  - BONE MARROW FAILURE [None]
  - CYTOMEGALOVIRUS INFECTION [None]
  - DIARRHOEA [None]
  - GRAFT VERSUS HOST DISEASE [None]
  - MUCOSAL EXFOLIATION [None]
  - NEUTROPENIA [None]
  - RASH GENERALISED [None]
  - T-LYMPHOCYTE COUNT INCREASED [None]
  - THROMBOCYTOPENIA [None]
